FAERS Safety Report 19155980 (Version 1)
Quarter: 2021Q2

REPORT INFORMATION
  Report Type: Report from Study
  Country: US (occurrence: US)
  Receive Date: 20210420
  Receipt Date: 20210420
  Transmission Date: 20210717
  Serious: Yes (Hospitalization)
  Sender: FDA-Public Use
  Company Number: US-GILEAD-2021-0525062

PATIENT
  Age: 21 Year
  Sex: Female

DRUGS (24)
  1. FAMOTIDINE. [Concomitant]
     Active Substance: FAMOTIDINE
  2. URSODIOL. [Concomitant]
     Active Substance: URSODIOL
  3. INSULIN [Concomitant]
     Active Substance: INSULIN NOS
  4. AZITHROMYCIN ANHYDROUS. [Concomitant]
     Active Substance: AZITHROMYCIN ANHYDROUS
  5. SPIRONOLACTONE. [Concomitant]
     Active Substance: SPIRONOLACTONE
  6. VITAMIN D NOS [Concomitant]
     Active Substance: VITAMIN D NOS
  7. VITAMIN E [Concomitant]
     Active Substance: .ALPHA.-TOCOPHEROL
  8. AZTREONAM LYSINE [Suspect]
     Active Substance: AZTREONAM LYSINE
     Indication: CYSTIC FIBROSIS LUNG
     Dosage: 1 ML, TID FOR 28 DAYS ON AND 28 DAYS OFF
     Route: 055
     Dates: start: 20140325
  9. PROAIR HFA [Concomitant]
     Active Substance: ALBUTEROL SULFATE
  10. VITAMIN A [RETINOL] [Concomitant]
     Active Substance: RETINOL
  11. CREON [Concomitant]
     Active Substance: PANCRELIPASE AMYLASE\PANCRELIPASE LIPASE\PANCRELIPASE PROTEASE
  12. CIMETIDINE [Concomitant]
     Active Substance: CIMETIDINE
  13. VITAMIN D3 [Concomitant]
     Active Substance: CHOLECALCIFEROL
  14. DENTA 5000 PLUS [Concomitant]
     Active Substance: SODIUM FLUORIDE
  15. OMEPRAZOLE. [Concomitant]
     Active Substance: OMEPRAZOLE
  16. PHYTONADIONE. [Concomitant]
     Active Substance: PHYTONADIONE
  17. MONTELUKAST [Concomitant]
     Active Substance: MONTELUKAST SODIUM
  18. POLYETHYLENE GLYCOL [MACROGOL] [Concomitant]
     Active Substance: POLYETHYLENE GLYCOLS
  19. TOBRAMYCIN. [Concomitant]
     Active Substance: TOBRAMYCIN
  20. BACLOFEN. [Concomitant]
     Active Substance: BACLOFEN
  21. ZINC GLUCONATE [Concomitant]
     Active Substance: ZINC GLUCONATE
  22. MULTIVITAMIN AND MINERAL SUPPLEMENT [Concomitant]
     Active Substance: MINERALS\VITAMINS
  23. GALZIN [Concomitant]
     Active Substance: ZINC ACETATE
  24. SODIUM CHLORID [Concomitant]

REACTIONS (1)
  - Constipation [Unknown]

NARRATIVE: CASE EVENT DATE: 20210330
